FAERS Safety Report 4383826-2 (Version None)
Quarter: 2004Q2

REPORT INFORMATION
  Report Type: 
  Country: None (occurrence: None)
  Receive Date: 20040608
  Receipt Date: 20030903
  Transmission Date: 20050107
  Serious: Yes (Other)
  Sender: FDA-Public Use
  Company Number: 200313121BCC

PATIENT
  Age: 71 Year
  Sex: Female
  Weight: 68.0396 kg

DRUGS (1)
  1. ALEVE [Suspect]
     Indication: PAIN
     Dosage: ORAL
     Route: 048

REACTIONS (1)
  - HAEMATOCHEZIA [None]
